FAERS Safety Report 6099797-7 (Version None)
Quarter: 2009Q1

REPORT INFORMATION
  Report Type: 
  Country: None (occurrence: None)
  Receive Date: 20090303
  Receipt Date: 20090219
  Transmission Date: 20090719
  Serious: Yes (Hospitalization, Other)
  Sender: FDA-Public Use
  Company Number: PHHY2008JP21175

PATIENT
  Sex: Female
  Weight: 8 kg

DRUGS (1)
  1. TEGRETOL [Suspect]
     Indication: EPILEPSY
     Dosage: 150 MG DAILY
     Route: 048
     Dates: start: 20080616, end: 20080813

REACTIONS (4)
  - NEUTROPENIA [None]
  - STATUS EPILEPTICUS [None]
  - SUBCUTANEOUS ABSCESS [None]
  - THROMBOCYTOPENIA [None]
